FAERS Safety Report 24275397 (Version 2)
Quarter: 2025Q2

REPORT INFORMATION
  Report Type: Spontaneous
  Country: US (occurrence: US)
  Receive Date: 20240903
  Receipt Date: 20250626
  Transmission Date: 20250717
  Serious: No
  Sender: ROCHE
  Company Number: US-ROCHE-10000071346

PATIENT
  Age: 18 Year
  Sex: Male
  Weight: 76.2 kg

DRUGS (3)
  1. HEMLIBRA [Suspect]
     Active Substance: EMICIZUMAB-KXWH
     Indication: Factor VIII deficiency
     Dosage: STRENGTH- 105MG/0.7ML
     Route: 058
     Dates: start: 201207
  2. HEMLIBRA [Suspect]
     Active Substance: EMICIZUMAB-KXWH
     Dosage: STRENGTH- 105MG/0.7ML, 150MG/ML
     Route: 058
     Dates: start: 201207
  3. ADVATE [Concomitant]
     Active Substance: ANTIHEMOPHILIC FACTOR, HUMAN RECOMBINANT

REACTIONS (3)
  - Haemorrhage [Recovered/Resolved]
  - Limb injury [Unknown]
  - Fall [Unknown]

NARRATIVE: CASE EVENT DATE: 20250614
